FAERS Safety Report 5356325-9 (Version None)
Quarter: 2007Q2

REPORT INFORMATION
  Report Type: 
  Country: None (occurrence: None)
  Receive Date: 20070530
  Receipt Date: 20061212
  Transmission Date: 20071010
  Serious: Yes (Hospitalization)
  Sender: FDA-Public Use
  Company Number: US200609003769

PATIENT
  Age: 37 Year
  Sex: Female
  Weight: 49 kg

DRUGS (1)
  1. ZYPREXA [Suspect]
     Dosage: 7.5 MG
     Dates: start: 20011206, end: 20050205

REACTIONS (2)
  - DIABETES MELLITUS [None]
  - HYPERTENSION [None]
